FAERS Safety Report 5888265-0 (Version None)
Quarter: 2008Q3

REPORT INFORMATION
  Report Type: 
  Country: None (occurrence: None)
  Receive Date: 20080918
  Receipt Date: 20080908
  Transmission Date: 20090109
  Serious: Yes (Death, Hospitalization)
  Sender: FDA-Public Use
  Company Number: IN-BAXTER-2008BH009568

PATIENT
  Sex: Male
  Weight: 62 kg

DRUGS (1)
  1. DIANEAL [Suspect]
     Indication: RENAL FAILURE CHRONIC
     Route: 033
     Dates: start: 20080101, end: 20080901

REACTIONS (3)
  - CARDIAC ARREST [None]
  - HYPOPROTEINAEMIA [None]
  - SEPSIS [None]
